FAERS Safety Report 7189336-1 (Version None)
Quarter: 2010Q4

REPORT INFORMATION
  Report Type: 
  Country: None (occurrence: None)
  Receive Date: 20101222
  Receipt Date: 20101210
  Transmission Date: 20110411
  Serious: Yes (Hospitalization)
  Sender: FDA-Public Use
  Company Number: NL-MYLANLABS-2010S1023035

PATIENT
  Age: 61 Year
  Sex: Male

DRUGS (12)
  1. ENALAPRIL [Suspect]
     Route: 065
  2. FUROSEMIDE [Suspect]
     Route: 065
  3. SPIRONOLACTONE [Suspect]
     Route: 065
  4. PANTOPRAZOLE [Concomitant]
     Route: 065
  5. AMITRIPTYLINE HCL [Concomitant]
     Route: 065
  6. ATORVASTATIN [Concomitant]
     Route: 065
  7. ISOSORBIDE MONONITRATE [Concomitant]
     Route: 065
  8. ATENOLOL [Concomitant]
     Route: 065
  9. ASPIRIN [Concomitant]
     Route: 065
  10. CLONAZEPAM [Concomitant]
     Route: 065
  11. CARBAMAZEPINE [Concomitant]
     Route: 065
  12. INSULIN [Concomitant]
     Route: 065

REACTIONS (2)
  - HYPERKALAEMIA [None]
  - RENAL FAILURE ACUTE [None]
